FAERS Safety Report 12770331 (Version 6)
Quarter: 2017Q3

REPORT INFORMATION
  Report Type: Report from Study
  Country: US (occurrence: US)
  Receive Date: 20160922
  Receipt Date: 20170912
  Transmission Date: 20171127
  Serious: Yes (Other)
  Sender: FDA-Public Use
  Company Number: PHEH2016US024181

PATIENT
  Age: 49 Year
  Sex: Female

DRUGS (3)
  1. JADENU [Suspect]
     Active Substance: DEFERASIROX
     Dosage: 180 MG, QD
     Route: 048
  2. JADENU [Suspect]
     Active Substance: DEFERASIROX
     Indication: MYELODYSPLASTIC SYNDROME
     Dosage: 180 MG, UNK
     Route: 048
     Dates: start: 20160407
  3. JADENU [Suspect]
     Active Substance: DEFERASIROX
     Dosage: HALF THE DOSE, QOD
     Route: 065

REACTIONS (5)
  - Refractory anaemia with an excess of blasts [Unknown]
  - Incorrect drug administration duration [Unknown]
  - Myelodysplastic syndrome [Unknown]
  - Diarrhoea [Recovered/Resolved with Sequelae]
  - Condition aggravated [Unknown]

NARRATIVE: CASE EVENT DATE: 20160906
